FAERS Safety Report 14655594 (Version 2)
Quarter: 2018Q3

REPORT INFORMATION
  Report Type: Spontaneous
  Country: DE (occurrence: DE)
  Receive Date: 20180319
  Receipt Date: 20180801
  Transmission Date: 20181010
  Serious: Yes (Other)
  Sender: FDA-Public Use
  Company Number: DE-TEVA-2018-DE-871814

PATIENT
  Age: 56 Year
  Sex: Female

DRUGS (2)
  1. VIVINOX SLEEP STARK SCHLAFTABLETTEN [Suspect]
     Active Substance: DIPHENHYDRAMINE HYDROCHLORIDE
     Indication: SUICIDAL IDEATION
     Dosage: 20 DOSAGE FORMS DAILY; DAILY DOSE: 20 DF DOSAGE FORM EVERY DAY
     Route: 048
     Dates: start: 20171020
  2. HYDROMORPHONE 4 [Suspect]
     Active Substance: HYDROMORPHONE
     Indication: SUICIDAL IDEATION
     Dosage: 96 MILLIGRAM DAILY; 24 TABLETS
     Route: 048
     Dates: start: 20171020

REACTIONS (9)
  - Dizziness [Unknown]
  - Suicide attempt [Unknown]
  - Pneumonia [Unknown]
  - Dyspnoea [Unknown]
  - Somnolence [Unknown]
  - Intentional overdose [Unknown]
  - Pleural effusion [Unknown]
  - Blood creatine phosphokinase increased [Unknown]
  - Chest pain [Unknown]

NARRATIVE: CASE EVENT DATE: 20170120
